FAERS Safety Report 13344924 (Version 2)
Quarter: 2017Q2

REPORT INFORMATION
  Report Type: Report from Study
  Country: US (occurrence: US)
  Receive Date: 20170317
  Receipt Date: 20170426
  Transmission Date: 20170830
  Serious: Yes (Other)
  Sender: FDA-Public Use
  Company Number: PHEH2017US007741

PATIENT
  Age: 71 Year
  Sex: Female

DRUGS (1)
  1. COSENTYX [Suspect]
     Active Substance: SECUKINUMAB
     Indication: PRODUCT USED FOR UNKNOWN INDICATION
     Dosage: 150 MG, QW
     Route: 065

REACTIONS (8)
  - Insomnia [Unknown]
  - Arthritis [Unknown]
  - Skin haemorrhage [Unknown]
  - Arthralgia [Not Recovered/Not Resolved]
  - Pruritus generalised [Unknown]
  - Pain in extremity [Unknown]
  - Psoriasis [Unknown]
  - Rash [Unknown]

NARRATIVE: CASE EVENT DATE: 20170403
